FAERS Safety Report 17352111 (Version 3)
Quarter: 2021Q1

REPORT INFORMATION
  Report Type: Report from Study
  Country: None (occurrence: US)
  Receive Date: 20200130
  Receipt Date: 20210126
  Transmission Date: 20210419
  Serious: Yes (Hospitalization, Other)
  Sender: FDA-Public Use
  Company Number: US-SHIRE-US202003568

PATIENT
  Age: 66 Year
  Sex: Female
  Weight: 63.49 kg

DRUGS (15)
  1. TEDUGLUTIDE [Suspect]
     Active Substance: TEDUGLUTIDE
     Indication: SHORT-BOWEL SYNDROME
     Dosage: 2.93 MILLIGRAM, (TED DAILY DOSE 0.05 MG/G, 7 DOSES PER WEEK) 1X/DAY:QD
     Route: 065
     Dates: start: 20180826, end: 20190530
  2. TEDUGLUTIDE [Suspect]
     Active Substance: TEDUGLUTIDE
     Indication: MALABSORPTION
     Dosage: 2.93 MILLIGRAM, (TED DAULY DOSE 0.05 MG/G, 7 DOSES PER WEEK) 1X/DAY:QD
     Route: 065
     Dates: start: 201906
  3. TEDUGLUTIDE [Suspect]
     Active Substance: TEDUGLUTIDE
     Indication: MALABSORPTION
     Dosage: 2.93 MILLIGRAM, (TED DAULY DOSE 0.05 MG/G, 7 DOSES PER WEEK) 1X/DAY:QD
     Route: 065
     Dates: start: 201906
  4. TEDUGLUTIDE [Suspect]
     Active Substance: TEDUGLUTIDE
     Dosage: UNK
     Route: 050
  5. TEDUGLUTIDE [Suspect]
     Active Substance: TEDUGLUTIDE
     Dosage: UNK
     Route: 050
  6. TEDUGLUTIDE [Suspect]
     Active Substance: TEDUGLUTIDE
     Indication: SHORT-BOWEL SYNDROME
     Dosage: 2.93 MILLIGRAM, (TED DAILY DOSE 0.05 MG/G, 7 DOSES PER WEEK) 1X/DAY:QD
     Route: 065
     Dates: start: 20180826, end: 20190530
  7. TEDUGLUTIDE [Suspect]
     Active Substance: TEDUGLUTIDE
     Indication: SHORT-BOWEL SYNDROME
     Dosage: 2.93 MILLIGRAM, (TED DAILY DOSE 0.05 MG/G, 7 DOSES PER WEEK) 1X/DAY:QD
     Route: 065
     Dates: start: 20180826, end: 20190530
  8. VITAMINS NOS [Concomitant]
     Active Substance: VITAMINS
     Indication: HYPOCALCAEMIA
  9. AZITHROMYCIN ANHYDROUS. [Concomitant]
     Active Substance: AZITHROMYCIN ANHYDROUS
     Indication: MYCOBACTERIAL INFECTION
  10. TEDUGLUTIDE [Suspect]
     Active Substance: TEDUGLUTIDE
     Indication: MALABSORPTION
     Dosage: 2.93 MILLIGRAM, (TED DAULY DOSE 0.05 MG/G, 7 DOSES PER WEEK) 1X/DAY:QD
     Route: 065
     Dates: start: 201906
  11. TEDUGLUTIDE [Suspect]
     Active Substance: TEDUGLUTIDE
     Dosage: UNK
     Route: 050
  12. MOXIFLOXACIN. [Concomitant]
     Active Substance: MOXIFLOXACIN
     Indication: MYCOBACTERIAL INFECTION
  13. TEDUGLUTIDE [Suspect]
     Active Substance: TEDUGLUTIDE
     Indication: MALABSORPTION
     Dosage: 2.93 MILLIGRAM, (TED DAULY DOSE 0.05 MG/G, 7 DOSES PER WEEK) 1X/DAY:QD
     Route: 065
     Dates: start: 201906
  14. TEDUGLUTIDE [Suspect]
     Active Substance: TEDUGLUTIDE
     Dosage: UNK
     Route: 050
  15. TEDUGLUTIDE [Suspect]
     Active Substance: TEDUGLUTIDE
     Indication: SHORT-BOWEL SYNDROME
     Dosage: 2.93 MILLIGRAM, (TED DAILY DOSE 0.05 MG/G, 7 DOSES PER WEEK) 1X/DAY:QD
     Route: 065
     Dates: start: 20180826, end: 20190530

REACTIONS (4)
  - Product dose omission issue [Unknown]
  - Pyrexia [Not Recovered/Not Resolved]
  - Blood glucose increased [Not Recovered/Not Resolved]
  - Mycobacterial infection [Recovered/Resolved]

NARRATIVE: CASE EVENT DATE: 20200210
